FAERS Safety Report 23408980 (Version 1)
Quarter: 2024Q1

REPORT INFORMATION
  Report Type: Spontaneous
  Country: JP (occurrence: JP)
  Receive Date: 20240117
  Receipt Date: 20240117
  Transmission Date: 20240410
  Serious: Yes (Death, Hospitalization, Other)
  Sender: FDA-Public Use
  Company Number: JP-EPICPHARMA-JP-2024EPCLIT00025

PATIENT
  Age: 6 Decade
  Sex: Female

DRUGS (1)
  1. PENTOBARBITAL SODIUM [Suspect]
     Active Substance: PENTOBARBITAL SODIUM
     Indication: Product used for unknown indication
     Route: 065

REACTIONS (5)
  - Cardio-respiratory arrest [Fatal]
  - Loss of consciousness [Fatal]
  - Toxicity to various agents [Fatal]
  - Intentional product misuse [Unknown]
  - Overdose [Unknown]
